FAERS Safety Report 5586926-4 (Version None)
Quarter: 2008Q1

REPORT INFORMATION
  Report Type: 
  Country: None (occurrence: None)
  Receive Date: 20080110
  Receipt Date: 20071227
  Transmission Date: 20080703
  Serious: Yes (Other)
  Sender: FDA-Public Use
  Company Number: US-BAYER-200714297BCC

PATIENT
  Age: 78 Year
  Sex: Female

DRUGS (2)
  1. ONE A DAY VITAMINS [Suspect]
     Indication: VITAMIN SUPPLEMENTATION
     Route: 048
     Dates: start: 19510101
  2. ASPIRIN [Suspect]
     Indication: DRUG USE FOR UNKNOWN INDICATION
     Route: 048
     Dates: start: 19950101

REACTIONS (2)
  - THROAT TIGHTNESS [None]
  - VISUAL DISTURBANCE [None]
